FAERS Safety Report 5259487-7 (Version None)
Quarter: 2007Q1

REPORT INFORMATION
  Report Type: 
  Country: None (occurrence: None)
  Receive Date: 20070305
  Receipt Date: 20070220
  Transmission Date: 20070707
  Serious: Yes (Other)
  Sender: FDA-Public Use
  Company Number: 2007US-05886

PATIENT
  Age: 16 Year
  Sex: Female

DRUGS (3)
  1. ISOTRETINOIN [Suspect]
     Indication: ACNE CYSTIC
     Dosage: 40 MG, QD, ORAL
     Route: 048
     Dates: start: 20061013, end: 20070210
  2. PROZAC [Concomitant]
  3. SPRINTEC [Concomitant]

REACTIONS (2)
  - AFFECT LABILITY [None]
  - OVERDOSE [None]
